FAERS Safety Report 23695865 (Version 1)
Quarter: 2024Q2

REPORT INFORMATION
  Report Type: Spontaneous
  Country: CN (occurrence: CN)
  Receive Date: 20240402
  Receipt Date: 20240402
  Transmission Date: 20240716
  Serious: Yes (Other)
  Sender: FDA-Public Use
  Company Number: CN-BEIGENE-BGN-2024-004668

PATIENT

DRUGS (3)
  1. TISLELIZUMAB [Suspect]
     Active Substance: TISLELIZUMAB
     Indication: Hepatocellular carcinoma
     Dosage: 200 MILLIGRAM
     Route: 041
     Dates: start: 20231221
  2. CAPECITABINE [Concomitant]
     Active Substance: CAPECITABINE
     Indication: Hepatocellular carcinoma
     Dosage: 1.5 GRAM
     Route: 048
     Dates: start: 20231221
  3. OXALIPLATIN [Concomitant]
     Active Substance: OXALIPLATIN
     Indication: Hepatocellular carcinoma
     Dosage: 100 MILLIGRAM
     Route: 041
     Dates: start: 20231221

REACTIONS (1)
  - Immune-mediated hyperthyroidism [Recovering/Resolving]

NARRATIVE: CASE EVENT DATE: 20240112
